FAERS Safety Report 9455050 (Version 1)
Quarter: 2013Q3

REPORT INFORMATION
  Report Type: Spontaneous
  Country: TR (occurrence: TR)
  Receive Date: 20130813
  Receipt Date: 20130813
  Transmission Date: 20140515
  Serious: Yes (Hospitalization, Other)
  Sender: FDA-Public Use
  Company Number: TR-AMGEN-TURSP2013009932

PATIENT
  Age: 64 Year
  Sex: Female

DRUGS (2)
  1. ENBREL [Suspect]
     Indication: RHEUMATOID ARTHRITIS
     Dosage: 50 MG, WEEKLY
     Route: 058
     Dates: start: 20110509, end: 201306
  2. ENBREL [Suspect]
     Indication: PSORIASIS

REACTIONS (3)
  - Local swelling [Recovered/Resolved]
  - Pneumonia [Recovered/Resolved]
  - Psoriasis [Recovered/Resolved]
